FAERS Safety Report 19772469 (Version 1)
Quarter: 2021Q3

REPORT INFORMATION
  Report Type: Spontaneous
  Country: FR (occurrence: FR)
  Receive Date: 20210901
  Receipt Date: 20210901
  Transmission Date: 20211014
  Serious: Yes (Hospitalization)
  Sender: FDA-Public Use
  Company Number: FR-MYLANLABS-2021M1056898

PATIENT
  Age: 70 Year
  Sex: Male
  Weight: 59.2 kg

DRUGS (15)
  1. LANSOPRAZOLE. [Suspect]
     Active Substance: LANSOPRAZOLE
     Indication: PROPHYLAXIS
     Dosage: 15 MILLIGRAM, QD
     Route: 048
  2. ETOPOSIDE. [Suspect]
     Active Substance: ETOPOSIDE
     Indication: ANGIOIMMUNOBLASTIC T-CELL LYMPHOMA
     Dosage: 570 MILLIGRAM, Q3W
     Route: 042
     Dates: start: 20200910, end: 20201030
  3. ABASAGLAR [Suspect]
     Active Substance: INSULIN GLARGINE
     Indication: TYPE 2 DIABETES MELLITUS
     Dosage: 12 INTERNATIONAL UNIT, QD
     Route: 057
  4. BACTRIM [Suspect]
     Active Substance: SULFAMETHOXAZOLE\TRIMETHOPRIM
     Indication: ANTIFUNGAL PROPHYLAXIS
     Dosage: 1 DOSAGE FORM, Q3W
     Route: 048
     Dates: start: 202009
  5. DOXORUBICINE                       /00330901/ [Suspect]
     Active Substance: DOXORUBICIN
     Indication: ANGIOIMMUNOBLASTIC T-CELL LYMPHOMA
     Dosage: 85 MILLIGRAM, Q3W
     Route: 042
     Dates: start: 20200910, end: 20201028
  6. BISOPROLOL [Suspect]
     Active Substance: BISOPROLOL
     Indication: HYPERTENSION
     Dosage: 1.25 MILLIGRAM, QD
     Route: 048
  7. RAMIPRIL. [Suspect]
     Active Substance: RAMIPRIL
     Indication: HYPERTENSION
     Dosage: 1.25 MILLIGRAM, QD
     Route: 048
  8. LEDERFOLINE [Suspect]
     Active Substance: LEUCOVORIN CALCIUM
     Indication: VITAMIN SUPPLEMENTATION
     Dosage: 1 DOSAGE FORM, QW
     Route: 048
     Dates: start: 202009
  9. VINCRISTINE                        /00078802/ [Suspect]
     Active Substance: VINCRISTINE
     Indication: ANGIOIMMUNOBLASTIC T-CELL LYMPHOMA
     Dosage: 1.9 MILLIGRAM, Q3W
     Route: 042
     Dates: start: 20200908, end: 20201028
  10. VENCLYXTO [Suspect]
     Active Substance: VENETOCLAX
     Indication: ANGIOIMMUNOBLASTIC T-CELL LYMPHOMA
     Dosage: 400 MILLIGRAM, QD
     Route: 048
     Dates: start: 20201123, end: 20210310
  11. CYCLOPHOSPHAMIDE. [Suspect]
     Active Substance: CYCLOPHOSPHAMIDE
     Indication: ANGIOIMMUNOBLASTIC T-CELL LYMPHOMA
     Dosage: 1300 MILLIGRAM, Q3W
     Route: 042
     Dates: start: 20200910, end: 20201028
  12. GLICLAZIDE [Suspect]
     Active Substance: GLICLAZIDE
     Indication: TYPE 2 DIABETES MELLITUS
     Dosage: 15 MILLIGRAM, QD
     Route: 048
     Dates: end: 20210210
  13. VIDAZA [Suspect]
     Active Substance: AZACITIDINE
     Indication: ANGIOIMMUNOBLASTIC T-CELL LYMPHOMA
     Dosage: 910 MILLIGRAM, CYCLE
     Route: 058
     Dates: start: 20201123, end: 20210215
  14. ATORVASTATIN [Suspect]
     Active Substance: ATORVASTATIN
     Indication: DYSLIPIDAEMIA
     Dosage: 10 MILLIGRAM, QD
     Route: 048
  15. VALACICLOVIR [Suspect]
     Active Substance: VALACYCLOVIR HYDROCHLORIDE
     Indication: OPPORTUNISTIC INFECTION PROPHYLAXIS
     Dosage: 1000 MILLIGRAM, QD
     Route: 048

REACTIONS (1)
  - Cardiac failure [Not Recovered/Not Resolved]

NARRATIVE: CASE EVENT DATE: 20210208
